FAERS Safety Report 14365080 (Version 1)
Quarter: 2018Q1

REPORT INFORMATION
  Report Type: Spontaneous
  Country: US (occurrence: US)
  Receive Date: 20180108
  Receipt Date: 20180108
  Transmission Date: 20180509
  Serious: No
  Sender: FDA-Public Use
  Company Number: US-ROCHE-1991358

PATIENT
  Age: 36 Year
  Sex: Female

DRUGS (1)
  1. ACTILYSE [Suspect]
     Active Substance: ALTEPLASE
     Indication: AORTIC THROMBOSIS
     Dosage: 10 MG IV BOLUS FOLLOWED BY 90 MG INFUSION
     Route: 040

REACTIONS (1)
  - Abdominal pain [Unknown]
